FAERS Safety Report 8477094-X (Version None)
Quarter: 2012Q2

REPORT INFORMATION
  Report Type: 
  Country: None (occurrence: None)
  Receive Date: 20120629
  Receipt Date: 20120626
  Transmission Date: 20120825
  Serious: No
  Sender: FDA-Public Use
  Company Number: US-PFIZER INC-2012154433

PATIENT
  Sex: Female
  Weight: 73 kg

DRUGS (5)
  1. LYRICA [Suspect]
     Indication: FIBROMYALGIA
     Dosage: 50 MG, 2X/DAY
     Route: 048
     Dates: start: 20100501, end: 20120401
  2. ARAVA [Concomitant]
     Indication: OSTEOARTHRITIS
     Dosage: UNK
  3. PREDNISONE [Concomitant]
     Dosage: 5 MG, UNK
  4. XANAX [Concomitant]
     Indication: INSOMNIA
     Dosage: UNK, 1X/DAY
  5. ARAVA [Concomitant]
     Indication: RHEUMATOID ARTHRITIS

REACTIONS (5)
  - MIGRAINE [None]
  - INSOMNIA [None]
  - FATIGUE [None]
  - PAIN [None]
  - HEADACHE [None]
